FAERS Safety Report 6083812-0 (Version None)
Quarter: 2009Q1

REPORT INFORMATION
  Report Type: 
  Country: None (occurrence: None)
  Receive Date: 20090219
  Receipt Date: 20090210
  Transmission Date: 20090719
  Serious: Yes (Other)
  Sender: FDA-Public Use
  Company Number: BR-PFIZER INC-2008156741

PATIENT

DRUGS (3)
  1. FRONTAL [Suspect]
     Indication: PANIC DISORDER
     Dosage: UNK
     Route: 048
     Dates: start: 19860101
  2. LOSARTAN [Concomitant]
     Dosage: UNK
     Route: 065
  3. RIVOTRIL [Concomitant]
     Dosage: UNK
     Route: 065

REACTIONS (3)
  - DRUG INEFFECTIVE [None]
  - SURGERY [None]
  - WEIGHT INCREASED [None]
